APPROVED DRUG PRODUCT: IRINOTECAN HYDROCHLORIDE
Active Ingredient: IRINOTECAN HYDROCHLORIDE
Strength: 100MG/5ML (20MG/ML)
Dosage Form/Route: INJECTABLE;INJECTION
Application: A090675 | Product #001
Applicant: JIANGSU HENGRUI PHARMACEUTICALS CO LTD
Approved: Dec 16, 2011 | RLD: No | RS: No | Type: DISCN